FAERS Safety Report 5014023-5 (Version None)
Quarter: 2006Q2

REPORT INFORMATION
  Report Type: 
  Country: None (occurrence: None)
  Receive Date: 20060414
  Receipt Date: 20060127
  Transmission Date: 20061013
  Serious: No
  Sender: FDA-Public Use
  Company Number: 2006SP000513

PATIENT
  Age: 61 Year
  Sex: Female
  Weight: 49.8957 kg

DRUGS (13)
  1. LUNESTA [Suspect]
     Indication: INSOMNIA
     Dosage: 3 MG;HS;ORAL
     Route: 048
     Dates: start: 20051001
  2. ATORVASTATIN CALCIUM [Concomitant]
  3. NEURONTIN [Concomitant]
  4. HYDROXYCHLOROQUINE SULFATE [Concomitant]
  5. DICLOFENAC POTASSIUM [Concomitant]
  6. HORMONES AND RELATED AGENTS [Concomitant]
  7. INDAPAMIDE [Concomitant]
  8. PAROXETINE HCL [Concomitant]
  9. LEVOTHYROXINE SODIUM [Concomitant]
  10. NIFEDIPINE [Concomitant]
  11. ZELNORM [Concomitant]
  12. ADVAIR DISKUS 100/50 [Concomitant]
  13. RESTASIS [Concomitant]

REACTIONS (2)
  - DRUG INEFFECTIVE [None]
  - MIDDLE INSOMNIA [None]
